FAERS Safety Report 7337706-0 (Version None)
Quarter: 2011Q1

REPORT INFORMATION
  Report Type: 
  Country: None (occurrence: None)
  Receive Date: 20110308
  Receipt Date: 20110222
  Transmission Date: 20110831
  Serious: Yes (Other)
  Sender: FDA-Public Use
  Company Number: US-AMGEN-USASP2011010418

PATIENT
  Age: 60 Year
  Sex: Male

DRUGS (2)
  1. ENBREL [Suspect]
     Indication: PSORIASIS
  2. ENBREL [Suspect]
     Indication: PSORIATIC ARTHROPATHY

REACTIONS (10)
  - DIVERTICULUM [None]
  - NEURALGIA [None]
  - GAIT DISTURBANCE [None]
  - PAIN IN EXTREMITY [None]
  - ABDOMINAL PAIN LOWER [None]
  - OEDEMA PERIPHERAL [None]
  - PAIN [None]
  - FALL [None]
  - INTERVERTEBRAL DISC PROTRUSION [None]
  - PSORIATIC ARTHROPATHY [None]
